FAERS Safety Report 12995671 (Version 1)
Quarter: 2016Q4

REPORT INFORMATION
  Report Type: Spontaneous
  Country: FR (occurrence: FR)
  Receive Date: 20161202
  Receipt Date: 20161202
  Transmission Date: 20170207
  Serious: Yes (Life-Threatening, Hospitalization)
  Sender: FDA-Public Use
  Company Number: FR-ELI_LILLY_AND_COMPANY-FR201611008353

PATIENT
  Age: 56 Year
  Sex: Male
  Weight: 58 kg

DRUGS (7)
  1. ALIMTA [Suspect]
     Active Substance: PEMETREXED DISODIUM
     Indication: LUNG ADENOCARCINOMA STAGE II
     Dosage: 1730 MG, CYCLICAL
     Route: 042
     Dates: start: 20151118, end: 20160108
  2. SPECIAFOLDINE [Concomitant]
     Active Substance: FOLIC ACID
     Dosage: 0.4 MG, QD
     Route: 048
  3. AMAVITA PARACETAMOL [Concomitant]
     Dosage: 4 G, QD: 1G EVERY 6 HOURS IF NEEDED
     Route: 048
  4. NOCTAMIDE [Concomitant]
     Active Substance: LORMETAZEPAM
     Dosage: 1 MG, QD
     Route: 048
  5. CRESTOR [Concomitant]
     Active Substance: ROSUVASTATIN CALCIUM
     Dosage: 10 MG, QD
     Route: 048
  6. AVASTIN [Suspect]
     Active Substance: BEVACIZUMAB
     Indication: LUNG ADENOCARCINOMA STAGE II
     Dosage: 500 MG, OTHER: SINGLE INTAKE TWICE
     Route: 042
     Dates: start: 20151118, end: 20160108
  7. CISPLATIN ACCORD [Suspect]
     Active Substance: CISPLATIN
     Indication: LUNG ADENOCARCINOMA STAGE II
     Dosage: 130 MG, OTHER: SINGLE INTAKE TWICE
     Dates: start: 20151118, end: 20160108

REACTIONS (9)
  - Procalcitonin increased [Unknown]
  - Sepsis [Unknown]
  - Febrile bone marrow aplasia [Recovered/Resolved]
  - Acute kidney injury [Not Recovered/Not Resolved]
  - C-reactive protein increased [Unknown]
  - Thrombocytopenia [Unknown]
  - General physical health deterioration [Not Recovered/Not Resolved]
  - Decreased appetite [Recovering/Resolving]
  - Diarrhoea [Recovered/Resolved]

NARRATIVE: CASE EVENT DATE: 201601
